FAERS Safety Report 8862902 (Version 2)
Quarter: 2012Q4

REPORT INFORMATION
  Report Type: 
  Country: JP (occurrence: JP)
  Receive Date: 20121026
  Receipt Date: 20121101
  Transmission Date: 20130627
  Serious: No
  Sender: FDA-Public Use
  Company Number: JP-PFIZER INC-2012259604

PATIENT
  Age: 55 Year
  Sex: Male

DRUGS (1)
  1. ZITHROMAC [Suspect]
     Route: 048

REACTIONS (1)
  - Myalgia [Recovered/Resolved]
